FAERS Safety Report 5767351-X (Version None)
Quarter: 2008Q2

REPORT INFORMATION
  Report Type: 
  Country: None (occurrence: None)
  Receive Date: 20080612
  Receipt Date: 20080606
  Transmission Date: 20081010
  Serious: Yes (Hospitalization)
  Sender: FDA-Public Use
  Company Number: A0731753A

PATIENT
  Age: 68 Year
  Sex: Male

DRUGS (9)
  1. REQUIP [Suspect]
     Indication: RESTLESS LEGS SYNDROME
     Dosage: 1MG PER DAY
     Route: 048
     Dates: start: 20080522, end: 20080602
  2. CHOLESTEROL REDUCING AGENT [Concomitant]
  3. BLOOD PRESSURE MEDICATION [Concomitant]
  4. ACID REFLUX MED. [Concomitant]
  5. UNSPECIFIED MEDICATION [Concomitant]
  6. CELEBREX [Concomitant]
  7. ALLOPURINOL [Concomitant]
  8. MULTI-VITAMIN [Concomitant]
  9. XENICAL [Concomitant]

REACTIONS (4)
  - BLOOD PRESSURE INCREASED [None]
  - CHEST PAIN [None]
  - DYSPNOEA [None]
  - ENZYME ABNORMALITY [None]
